FAERS Safety Report 8320337-3 (Version None)
Quarter: 2012Q2

REPORT INFORMATION
  Report Type: 
  Country: None (occurrence: None)
  Receive Date: 20120430
  Receipt Date: 20120424
  Transmission Date: 20120825
  Serious: No
  Sender: FDA-Public Use
  Company Number: US-PFIZER INC-2012102053

PATIENT
  Sex: Female

DRUGS (7)
  1. E-MYCIN [Suspect]
     Dosage: UNK
  2. PAXIL [Suspect]
     Dosage: UNK
  3. BIAXIN [Suspect]
     Dosage: UNK
  4. TAGAMET [Suspect]
     Dosage: UNK
  5. NEXIUM [Suspect]
     Dosage: UNK
  6. GABAPENTIN [Suspect]
     Dosage: UNK
  7. CELEXA [Suspect]
     Dosage: UNK

REACTIONS (1)
  - DRUG HYPERSENSITIVITY [None]
